FAERS Safety Report 26028878 (Version 3)
Quarter: 2025Q4

REPORT INFORMATION
  Report Type: Spontaneous
  Country: EU (occurrence: EU)
  Receive Date: 20251112
  Receipt Date: 20251204
  Transmission Date: 20260117
  Serious: Yes (Other)
  Sender: AUROBINDO
  Company Number: EU-ELI_LILLY_AND_COMPANY-ES202509020216

PATIENT
  Age: 56 Year
  Sex: Female

DRUGS (5)
  1. ANASTROZOLE [Suspect]
     Active Substance: ANASTROZOLE
     Indication: Breast cancer
     Dosage: UNK UNK, DAILY
     Route: 065
  2. ABEMACICLIB [Suspect]
     Active Substance: ABEMACICLIB
     Indication: Breast cancer
     Dosage: 300 MILLIGRAM, ONCE A DAY (150 MG, BID)
     Dates: start: 202409
  3. ABEMACICLIB [Suspect]
     Active Substance: ABEMACICLIB
     Dosage: 200 MILLIGRAM, ONCE A DAY (100 MG, BID)
     Dates: start: 2024
  4. ABEMACICLIB [Suspect]
     Active Substance: ABEMACICLIB
     Dosage: 100 MILLIGRAM, ONCE A DAY
  5. LOPERAMIDE [Suspect]
     Active Substance: LOPERAMIDE
     Indication: Diarrhoea
     Dosage: UNK UNK, UNKNOWN
     Route: 065

REACTIONS (33)
  - Breast abscess [Recovered/Resolved]
  - Sensitive skin [Unknown]
  - Skin atrophy [Unknown]
  - Vein disorder [Unknown]
  - Pain [Recovering/Resolving]
  - Hyperhidrosis [Recovering/Resolving]
  - Constipation [Recovering/Resolving]
  - Illness [Recovering/Resolving]
  - Decreased immune responsiveness [Recovering/Resolving]
  - Paraesthesia [Recovering/Resolving]
  - Hypoaesthesia [Not Recovered/Not Resolved]
  - Poor peripheral circulation [Recovering/Resolving]
  - Musculoskeletal stiffness [Not Recovered/Not Resolved]
  - Gait disturbance [Recovering/Resolving]
  - Dysstasia [Not Recovered/Not Resolved]
  - Bone pain [Recovering/Resolving]
  - Back pain [Recovering/Resolving]
  - Sleep disorder due to general medical condition, insomnia type [Recovering/Resolving]
  - Diarrhoea [Recovered/Resolved]
  - Fatigue [Recovering/Resolving]
  - Mastitis [Recovering/Resolving]
  - Toothache [Recovering/Resolving]
  - Hand dermatitis [Recovering/Resolving]
  - Pain in extremity [Recovering/Resolving]
  - Inflammation [Recovering/Resolving]
  - Breast fibrosis [Recovering/Resolving]
  - Mobility decreased [Not Recovered/Not Resolved]
  - Anal fissure haemorrhage [Recovered/Resolved]
  - Tooth infection [Unknown]
  - Teeth brittle [Unknown]
  - Dental attrition [Unknown]
  - Weight gain poor [Recovering/Resolving]
  - Asthenia [Not Recovered/Not Resolved]

NARRATIVE: CASE EVENT DATE: 20240101
